FAERS Safety Report 5108439-6 (Version None)
Quarter: 2006Q3

REPORT INFORMATION
  Report Type: 
  Country: None (occurrence: None)
  Receive Date: 20060915
  Receipt Date: 20060901
  Transmission Date: 20061208
  Serious: Yes (Hospitalization, Other)
  Sender: FDA-Public Use
  Company Number: 2006AL002638

PATIENT
  Age: 28 Year
  Sex: Female

DRUGS (7)
  1. TRAZODONE HCL [Suspect]
  2. ZIPRASIDONE HCL [Concomitant]
  3. LITHIUM CARBONATE [Concomitant]
  4. LEVETIRACETAM [Concomitant]
  5. FLUCONAZOLE [Concomitant]
  6. CIPROFLOXACIN [Concomitant]
  7. POTASSIUM SUPPLIMENT [Concomitant]

REACTIONS (2)
  - HYPOTENSION [None]
  - TORSADE DE POINTES [None]
